FAERS Safety Report 23332264 (Version 1)
Quarter: 2023Q4

REPORT INFORMATION
  Report Type: Spontaneous
  Country: GB (occurrence: GB)
  Receive Date: 20231222
  Receipt Date: 20231222
  Transmission Date: 20240110
  Serious: Yes (Other)
  Sender: FDA-Public Use
  Company Number: None

PATIENT
  Age: 56 Year

DRUGS (24)
  1. CIPROFLOXACIN [Suspect]
     Active Substance: CIPROFLOXACIN
     Dosage: 500 MG, BID
     Dates: start: 20230615, end: 20230617
  2. FLOLAN [Concomitant]
     Active Substance: EPOPROSTENOL SODIUM
     Dosage: 1.4 ML, Q1HR
  3. CALCIUM CARBONATE\CHOLECALCIFEROL [Concomitant]
     Active Substance: CALCIUM CARBONATE\CHOLECALCIFEROL
     Dosage: 1 DF, BID
  4. CLARITHROMYCIN [Concomitant]
     Active Substance: CLARITHROMYCIN
     Dosage: UNK
     Dates: start: 20230515
  5. CLARITHROMYCIN [Concomitant]
     Active Substance: CLARITHROMYCIN
     Dosage: 500 MG BD
     Dates: start: 20230523
  6. IPRATROPIUM BROMIDE [Concomitant]
     Active Substance: IPRATROPIUM BROMIDE\IPRATROPIUM BROMIDE ANHYDROUS
  7. CLOPIDOGREL [Concomitant]
     Active Substance: CLOPIDOGREL BISULFATE
     Route: 048
  8. APIXABAN [Concomitant]
     Active Substance: APIXABAN
     Dosage: 2.5 MG, BID
     Route: 048
  9. PREDNISOLONE [Concomitant]
     Active Substance: PREDNISOLONE
     Route: 048
     Dates: start: 20230515
  10. BUMETANIDE [Concomitant]
     Active Substance: BUMETANIDE
     Dosage: 3 MG, BID
     Route: 048
  11. DAPAGLIFLOZIN [Concomitant]
     Active Substance: DAPAGLIFLOZIN
     Dosage: 10 MG, QD
     Route: 048
  12. RAMIPRIL [Concomitant]
     Active Substance: RAMIPRIL
     Dosage: 2.5 MG, BID
     Route: 048
  13. DOXYCYCLINE [Concomitant]
     Active Substance: DOXYCYCLINE
     Route: 048
     Dates: start: 20230515
  14. CITALOPRAM [Concomitant]
     Active Substance: CITALOPRAM HYDROBROMIDE
     Dosage: UNK
     Route: 048
  15. QUININE SULFATE [Concomitant]
     Active Substance: QUININE SULFATE
     Dosage: 200 MG, QD
     Route: 048
     Dates: start: 20230607
  16. BISOPROLOL [Concomitant]
     Active Substance: BISOPROLOL\BISOPROLOL FUMARATE
     Route: 048
  17. TADALAFIL [Concomitant]
     Active Substance: TADALAFIL
  18. ACETAMINOPHEN [Concomitant]
     Active Substance: ACETAMINOPHEN
     Route: 048
  19. MORPHINE SULFATE [Concomitant]
     Active Substance: MORPHINE SULFATE
     Indication: Pain
     Dosage: 1.25 ML, UNK
     Dates: start: 20230607
  20. ACETYLCYSTEINE [Concomitant]
     Active Substance: ACETYLCYSTEINE
     Dosage: 600 MG, QD
     Route: 048
  21. LANSOPRAZOLE [Concomitant]
     Active Substance: LANSOPRAZOLE
     Dosage: 30 MG, UNK
     Route: 048
  22. DENOSUMAB [Concomitant]
     Active Substance: DENOSUMAB
     Dosage: UNK
  23. SPIRONOLACTONE [Concomitant]
     Active Substance: SPIRONOLACTONE
     Dosage: 25 MG, BID
     Route: 048
  24. CHOLECALCIFEROL [Concomitant]
     Active Substance: CHOLECALCIFEROL
     Dosage: 20000 IU, Q1MON
     Route: 048
     Dates: start: 20220613

REACTIONS (1)
  - Raynaud^s phenomenon [Unknown]
